FAERS Safety Report 13998076 (Version 1)
Quarter: 2017Q3

REPORT INFORMATION
  Report Type: Spontaneous
  Country: RU (occurrence: RU)
  Receive Date: 20170921
  Receipt Date: 20170921
  Transmission Date: 20171128
  Serious: Yes (Other)
  Sender: FDA-Public Use
  Company Number: RU-ABBVIE-17P-251-2108227-00

PATIENT
  Age: 20 Year
  Sex: Female

DRUGS (1)
  1. DEPAKINE CHRONO [Suspect]
     Active Substance: VALPROATE SODIUM
     Indication: EPILEPSY
     Route: 048
     Dates: start: 20110312, end: 20161108

REACTIONS (4)
  - Menstrual disorder [Unknown]
  - Cognitive disorder [Unknown]
  - Weight increased [Unknown]
  - Alopecia [Unknown]

NARRATIVE: CASE EVENT DATE: 20160101
